FAERS Safety Report 15305194 (Version 1)
Quarter: 2018Q3

REPORT INFORMATION
  Report Type: Spontaneous
  Country: US (occurrence: US)
  Receive Date: 20180810
  Receipt Date: 20180810
  Transmission Date: 20181010
  Serious: Yes (Other)
  Sender: FDA-Public Use
  Company Number: None

PATIENT
  Age: 37 Year
  Sex: Female
  Weight: 79.2 kg

DRUGS (5)
  1. STEROID INJECTION ESI [Suspect]
     Active Substance: UNSPECIFIED INGREDIENT
     Indication: NERVE COMPRESSION
     Dosage: AS NEEDE ?EPIDURAL
     Route: 008
     Dates: start: 20170815, end: 20171101
  2. PROBIOTIC [Concomitant]
     Active Substance: PROBIOTICS NOS
  3. MULTI VITAMIN [Concomitant]
     Active Substance: VITAMINS
  4. STEROID INJECTION ESI [Suspect]
     Active Substance: UNSPECIFIED INGREDIENT
     Indication: NEURALGIA
     Dosage: AS NEEDE ?EPIDURAL
     Route: 008
     Dates: start: 20170815, end: 20171101
  5. DIGESTIVE ENZYMES [Concomitant]
     Active Substance: UNSPECIFIED INGREDIENT

REACTIONS (12)
  - Chest pain [None]
  - Balance disorder [None]
  - Headache [None]
  - Asthenia [None]
  - Blindness [None]
  - Fatigue [None]
  - Vision blurred [None]
  - Memory impairment [None]
  - Chest discomfort [None]
  - Dizziness [None]
  - Infarction [None]
  - Oxygen saturation decreased [None]

NARRATIVE: CASE EVENT DATE: 20171001
